FAERS Safety Report 26121578 (Version 1)
Quarter: 2025Q4

REPORT INFORMATION
  Report Type: Spontaneous
  Country: CH (occurrence: CH)
  Receive Date: 20251204
  Receipt Date: 20251204
  Transmission Date: 20260117
  Serious: Yes (Death, Hospitalization, Other)
  Sender: SANOFI AVENTIS
  Company Number: None

PATIENT
  Age: 65 Year
  Sex: Male
  Weight: 96 kg

DRUGS (6)
  1. ZOLPIDEM TARTRATE [Suspect]
     Active Substance: ZOLPIDEM TARTRATE
     Indication: Product used for unknown indication
     Dosage: UNK
     Route: 065
  2. RIFAMPIN [Interacting]
     Active Substance: RIFAMPIN
     Indication: Staphylococcal infection
     Dosage: 900 MG, QD
     Route: 065
     Dates: start: 20160903, end: 20160907
  3. APIXABAN [Interacting]
     Active Substance: APIXABAN
     Indication: Renal impairment
     Dosage: 10 MG, QD
     Route: 048
  4. ATORVASTATIN [Concomitant]
     Active Substance: ATORVASTATIN
     Indication: Product used for unknown indication
     Dosage: 40 MG
     Route: 065
  5. HEPARIN [Concomitant]
     Active Substance: HEPARIN SODIUM
     Indication: Product used for unknown indication
     Dosage: UNK
     Route: 065
  6. TORSEMIDE [Concomitant]
     Active Substance: TORSEMIDE
     Indication: Product used for unknown indication
     Dosage: UNK
     Route: 065

REACTIONS (15)
  - Acute kidney injury [Fatal]
  - Cardiac failure [Fatal]
  - Delirium [Fatal]
  - Hepatic failure [Fatal]
  - Drug interaction [Unknown]
  - Dyspnoea exertional [Fatal]
  - Fall [Fatal]
  - Gastrointestinal haemorrhage [Fatal]
  - Gout [Fatal]
  - Head injury [Fatal]
  - Staphylococcal infection [Fatal]
  - Pulmonary oedema [Fatal]
  - Septic shock [Fatal]
  - Epistaxis [Fatal]
  - Haematuria [Fatal]

NARRATIVE: CASE EVENT DATE: 20160815
